FAERS Safety Report 9195996 (Version 2)
Quarter: 2013Q2

REPORT INFORMATION
  Report Type: Spontaneous
  Country: AU (occurrence: AU)
  Receive Date: 20130328
  Receipt Date: 20130409
  Transmission Date: 20140414
  Serious: Yes (Death, Hospitalization)
  Sender: FDA-Public Use
  Company Number: PHHY2013AU029300

PATIENT
  Age: 69 Year
  Sex: Male

DRUGS (3)
  1. SANDOSTATIN LAR [Suspect]
     Indication: CARCINOID SYNDROME
     Dosage: 30 MG
     Route: 030
     Dates: start: 201111
  2. LASIX [Concomitant]
     Route: 048
  3. NEXUM [Concomitant]
     Route: 048

REACTIONS (5)
  - Intestinal perforation [Fatal]
  - Abdominal pain [Fatal]
  - Vomiting [Fatal]
  - Acute abdomen [Unknown]
  - Malignant neoplasm progression [Unknown]
